FAERS Safety Report 12988235 (Version 1)
Quarter: 2016Q4

REPORT INFORMATION
  Report Type: Report from Study
  Country: CL (occurrence: CL)
  Receive Date: 20161130
  Receipt Date: 20161130
  Transmission Date: 20170207
  Serious: Yes (Other)
  Sender: FDA-Public Use
  Company Number: CL-SA-2016SA214315

PATIENT
  Age: 72 Year
  Sex: Female

DRUGS (2)
  1. SOLOSTAR [Concomitant]
     Active Substance: DEVICE
  2. TOUJEO [Suspect]
     Active Substance: INSULIN GLARGINE
     Route: 058

REACTIONS (3)
  - Asthmatic crisis [Unknown]
  - Hypersensitivity [Unknown]
  - Cough [Unknown]

NARRATIVE: CASE EVENT DATE: 20161121
